FAERS Safety Report 4745200-6 (Version None)
Quarter: 2005Q3

REPORT INFORMATION
  Report Type: 
  Country: None (occurrence: None)
  Receive Date: 20050815
  Receipt Date: 20050802
  Transmission Date: 20060218
  Serious: Yes (Other)
  Sender: FDA-Public Use
  Company Number: US-JNJFOC-20050800853

PATIENT
  Age: 79 Year
  Sex: Male
  Weight: 77.11 kg

DRUGS (16)
  1. NATRECOR [Suspect]
     Dosage: 8.3 ML/HR OVER 5 HOURS.
     Route: 042
  2. NATRECOR [Suspect]
     Dosage: 8.3 MLS/HR X 4 HOURS.
     Route: 042
  3. NATRECOR [Suspect]
     Indication: DRUG USE FOR UNKNOWN INDICATION
     Dosage: BOLUS DOSE.
     Route: 042
  4. KCLOR [Concomitant]
  5. ASPIRIN [Concomitant]
  6. FERROUS SULFATE TAB [Concomitant]
  7. COUMADIN [Concomitant]
  8. LASIX [Concomitant]
  9. ALLOPURINOL [Concomitant]
  10. METOLAZONE [Concomitant]
  11. FLOMAX [Concomitant]
  12. VITAMIN E [Concomitant]
  13. ZOCOR [Concomitant]
  14. NIASPAN [Concomitant]
     Dosage: 27 ML BOLUS FOLLOWED BY 8.3 ML OVER FIVE HOURS
  15. METOPROLOL [Concomitant]
  16. CARVEDILOL [Concomitant]

REACTIONS (4)
  - BLOOD CREATININE INCREASED [None]
  - BLOOD UREA INCREASED [None]
  - BRAIN NATRIURETIC PEPTIDE INCREASED [None]
  - DIABETES MELLITUS [None]
